FAERS Safety Report 7519761-8 (Version None)
Quarter: 2011Q2

REPORT INFORMATION
  Report Type: 
  Country: None (occurrence: None)
  Receive Date: 20110602
  Receipt Date: 20110531
  Transmission Date: 20111010
  Serious: Yes (Other)
  Sender: FDA-Public Use
  Company Number: US-PFIZER INC-2008022014

PATIENT
  Sex: Female
  Weight: 74.83 kg

DRUGS (30)
  1. CHANTIX [Suspect]
     Dosage: 0.5 MG, 1X/DAY
     Route: 048
     Dates: start: 20100401, end: 20100619
  2. CELEBREX [Suspect]
     Indication: RHEUMATOID ARTHRITIS
  3. VALSARTAN [Suspect]
     Indication: HYPERTENSION
     Dosage: UNK
     Route: 048
  4. ATARAX [Concomitant]
     Dosage: 10 MG, 2X/DAY
  5. NEURONTIN [Concomitant]
     Indication: DIABETIC NEUROPATHY
     Dosage: 600 MG, 2X/DAY
     Route: 048
  6. CHANTIX [Suspect]
     Dosage: 1 MG, 2X/DAY
     Route: 048
     Dates: start: 20080101
  7. NOVOLOG [Suspect]
     Indication: DIABETES MELLITUS
     Dosage: UNK
     Dates: end: 20090101
  8. LASIX [Concomitant]
     Dosage: UNK
  9. DITROPAN [Concomitant]
     Dosage: 5 MG, 2X/DAY
     Route: 048
  10. ASCORBIC ACID [Concomitant]
     Dosage: 1000 MG, 2X/DAY
  11. CHANTIX [Suspect]
     Indication: SMOKING CESSATION THERAPY
     Dosage: 0.5 MG, DAILY
     Route: 048
     Dates: start: 20070101, end: 20100101
  12. CHANTIX [Suspect]
     Dosage: UNK
     Dates: start: 20090601
  13. CHANTIX [Suspect]
     Dosage: 1 MG, 2X/DAY
     Route: 048
     Dates: start: 20090901
  14. CELEBREX [Suspect]
     Indication: OSTEOARTHRITIS
     Dosage: UNK
     Route: 048
  15. GLIPIZIDE [Suspect]
     Indication: DIABETES MELLITUS
     Dosage: 5 MG, 3X/DAY
     Route: 048
     Dates: start: 20090101
  16. ASPIRIN [Concomitant]
     Dosage: 81 MG, 1X/DAY
  17. NITROGLYCERIN [Concomitant]
     Dosage: 2.5 MG, 2X/DAY
     Route: 048
  18. LOPRESSOR [Concomitant]
     Indication: HYPERTENSION
     Dosage: UNK
  19. CHANTIX [Suspect]
     Dosage: 1 MG, 2X/DAY
     Route: 048
  20. CELEXA [Concomitant]
     Dosage: 20 MG, 1X/DAY
     Route: 048
  21. XANAX [Concomitant]
     Dosage: 1 MG, 2X/DAY
  22. VITAMIN D [Concomitant]
     Dosage: UNK UG, WEEKLY
     Route: 048
  23. LANTUS [Concomitant]
     Indication: DIABETES MELLITUS
     Dosage: 25 UNITS, 2X/DAY
  24. PRILOSEC [Concomitant]
     Dosage: 20 MG, 1X/DAY
  25. CHANTIX [Suspect]
     Dosage: 0.5 MG, 1X/DAY
     Dates: start: 20080101
  26. VASOTEC [Suspect]
     Indication: HYPERTENSION
     Dosage: UNK
     Route: 048
  27. CALCIUM WITH VITAMIN D [Concomitant]
     Dosage: 500 MG, 2X/DAY
  28. VITAMIN B6 [Concomitant]
     Indication: DIABETIC NEUROPATHY
     Dosage: 100 MG, 1X/DAY
  29. IMODIUM [Concomitant]
     Dosage: UNK
     Route: 048
  30. VITAMIN B [Concomitant]
     Dosage: UNK
     Route: 048

REACTIONS (17)
  - TREMOR [None]
  - VOMITING [None]
  - FRUSTRATION [None]
  - DRUG INEFFECTIVE [None]
  - DEPRESSION [None]
  - BLOOD GLUCOSE INCREASED [None]
  - BLOOD IRON DECREASED [None]
  - DRUG HYPERSENSITIVITY [None]
  - STRESS [None]
  - DECREASED APPETITE [None]
  - MUSCLE SPASMS [None]
  - HYPERTENSION [None]
  - DRY SKIN [None]
  - BLOOD GLUCOSE DECREASED [None]
  - HYPERSENSITIVITY [None]
  - NAUSEA [None]
  - SOMNOLENCE [None]
